FAERS Safety Report 25603110 (Version 1)
Quarter: 2025Q3

REPORT INFORMATION
  Report Type: Spontaneous
  Country: US (occurrence: US)
  Receive Date: 20250724
  Receipt Date: 20250724
  Transmission Date: 20251021
  Serious: Yes (Other)
  Sender: AZURITY PHARMACEUTICALS
  Company Number: US-AZURITY PHARMACEUTICALS, INC.-AZR202506-002107

PATIENT
  Age: 63 Year
  Sex: Female

DRUGS (1)
  1. NIMODIPINE [Suspect]
     Active Substance: NIMODIPINE
     Indication: Subarachnoid haemorrhage
     Route: 048

REACTIONS (2)
  - Vasoplegia syndrome [Recovered/Resolved]
  - Distributive shock [Unknown]
